FAERS Safety Report 18327530 (Version 1)
Quarter: 2020Q3

REPORT INFORMATION
  Report Type: Report from Study
  Country: CA (occurrence: CA)
  Receive Date: 20200929
  Receipt Date: 20200929
  Transmission Date: 20201103
  Serious: Yes (Other)
  Sender: FDA-Public Use
  Company Number: CA-JNJFOC-20200923957

PATIENT
  Age: 41 Year
  Sex: Female
  Weight: 50.2 kg

DRUGS (4)
  1. HYDROMORPHONE [Suspect]
     Active Substance: HYDROMORPHONE
     Indication: PAIN
     Route: 065
     Dates: start: 202009
  2. STELARA [Suspect]
     Active Substance: USTEKINUMAB
     Indication: CROHN^S DISEASE
     Route: 058
     Dates: start: 20190103
  3. STELARA [Suspect]
     Active Substance: USTEKINUMAB
  4. HYDROMORPHONE [Suspect]
     Active Substance: HYDROMORPHONE
     Indication: FALL

REACTIONS (4)
  - Lower limb fracture [Not Recovered/Not Resolved]
  - Migraine [Unknown]
  - Discoloured vomit [Unknown]
  - Fall [Unknown]

NARRATIVE: CASE EVENT DATE: 202009
